FAERS Safety Report 23133296 (Version 1)
Quarter: 2023Q4

REPORT INFORMATION
  Report Type: Report from Study
  Country: US (occurrence: US)
  Receive Date: 20231101
  Receipt Date: 20231101
  Transmission Date: 20240110
  Serious: Yes (Hospitalization)
  Sender: FDA-Public Use
  Company Number: US-ABBVIE-5475402

PATIENT
  Age: 60 Year
  Sex: Female

DRUGS (1)
  1. SKYRIZI [Suspect]
     Active Substance: RISANKIZUMAB-RZAA
     Indication: Psoriasis
     Dosage: DOSAGE: 150 MG/ML FORM STRENGTH WAS 150 MILLIGRAM?EVERY 4 WEEKS FOR 2 DOSES THEN EVERY 12?WEEKS
     Route: 058
     Dates: start: 20231006

REACTIONS (3)
  - Chronic obstructive pulmonary disease [Unknown]
  - Rhinovirus infection [Unknown]
  - Emphysema [Unknown]

NARRATIVE: CASE EVENT DATE: 20231006
